FAERS Safety Report 15265380 (Version 1)
Quarter: 2018Q3

REPORT INFORMATION
  Report Type: Report from Study
  Country: None (occurrence: US)
  Receive Date: 20180810
  Receipt Date: 20180810
  Transmission Date: 20181010
  Serious: Yes (Other)
  Sender: FDA-Public Use
  Company Number: US-ABBVIE-18K-163-2442200-00

PATIENT
  Age: 32 Year
  Sex: Male

DRUGS (1)
  1. HUMIRA [Suspect]
     Active Substance: ADALIMUMAB
     Indication: CROHN^S DISEASE
     Route: 058
     Dates: start: 20180802

REACTIONS (5)
  - Loss of consciousness [Recovering/Resolving]
  - Product administered at inappropriate site [Recovered/Resolved]
  - Vomiting [Recovered/Resolved]
  - Muscle tightness [Unknown]
  - Confusional state [Unknown]

NARRATIVE: CASE EVENT DATE: 201808
